FAERS Safety Report 16429553 (Version 1)
Quarter: 2019Q2

REPORT INFORMATION
  Report Type: Report from Study
  Country: US (occurrence: US)
  Receive Date: 20190614
  Receipt Date: 20190614
  Transmission Date: 20190711
  Serious: Yes (Disabling)
  Sender: FDA-Public Use
  Company Number: US-BAUSCH-BL-2019-017145

PATIENT
  Sex: Male

DRUGS (1)
  1. XIFAXAN [Suspect]
     Active Substance: RIFAXIMIN
     Indication: HEPATIC ENCEPHALOPATHY
     Dosage: FOR 3-4 YEARS
     Route: 048
     Dates: start: 2015, end: 201905

REACTIONS (6)
  - Aphasia [Unknown]
  - Insurance issue [Unknown]
  - Therapy cessation [Unknown]
  - Inability to afford medication [Unknown]
  - Disability [Unknown]
  - Mental status changes [Unknown]

NARRATIVE: CASE EVENT DATE: 2019
